FAERS Safety Report 10502066 (Version 1)
Quarter: 2014Q4

REPORT INFORMATION
  Report Type: Spontaneous
  Country: DE (occurrence: DE)
  Receive Date: 20141007
  Receipt Date: 20141007
  Transmission Date: 20150528
  Serious: Yes (Congenital Anomaly, Other)
  Sender: FDA-Public Use
  Company Number: GXKR2014DE003711

PATIENT

DRUGS (2)
  1. VENLAFAXINE [Suspect]
     Active Substance: VENLAFAXINE HYDROCHLORIDE
     Indication: ANXIETY DISORDER
     Dosage: 75 [MG/D ]/ GW 0 - 15: 75MG/D; GW 15-29 NO THERAPY; GW 29-37: 37.5MG/D
     Route: 064
     Dates: start: 20130502, end: 20140119
  2. FOLSAEURE [Concomitant]
     Active Substance: FOLIC ACID
     Indication: PROPHYLAXIS OF NEURAL TUBE DEFECT
     Dosage: 0.4 [MG/D ]
     Route: 064

REACTIONS (2)
  - Meningomyelocele [Recovered/Resolved with Sequelae]
  - Tethered cord syndrome [Recovered/Resolved with Sequelae]
